FAERS Safety Report 7155869-7 (Version None)
Quarter: 2010Q4

REPORT INFORMATION
  Report Type: 
  Country: None (occurrence: None)
  Receive Date: 20101214
  Receipt Date: 20101130
  Transmission Date: 20110411
  Serious: Yes (Hospitalization, Other)
  Sender: FDA-Public Use
  Company Number: BR-PFIZER INC-2010169057

PATIENT
  Sex: Male

DRUGS (3)
  1. AMIODARONE HCL [Suspect]
     Indication: ATRIAL FIBRILLATION
     Dosage: 200 MG, DAILY
     Route: 048
     Dates: start: 19960101, end: 20030101
  2. AMIODARONE HCL [Suspect]
     Indication: ARRHYTHMIA
     Dosage: 200 MG, DAILY
     Route: 048
     Dates: start: 20091201, end: 20100101
  3. AMIODARONE HCL [Suspect]
     Dosage: 400 MG, 1X/DAY
     Dates: start: 20100101

REACTIONS (5)
  - CARDIAC FIBRILLATION [None]
  - ERYTHEMA [None]
  - PERICARDIAL HAEMORRHAGE [None]
  - PHOTOSENSITIVITY REACTION [None]
  - RETINAL DISORDER [None]
